FAERS Safety Report 6327500-1 (Version None)
Quarter: 2009Q3

REPORT INFORMATION
  Report Type: 
  Country: None (occurrence: None)
  Receive Date: 20090821
  Receipt Date: 20090813
  Transmission Date: 20100115
  Serious: Yes (Hospitalization)
  Sender: FDA-Public Use
  Company Number: SPV1-2009-00750

PATIENT
  Age: 5 Year
  Sex: Male
  Weight: 24.7 kg

DRUGS (5)
  1. ELAPRASE [Suspect]
     Indication: MUCOPOLYSACCHARIDOSIS II
     Dosage: 12 MG, 1X/WEEK, IV DRIP
     Route: 041
     Dates: start: 20090312
  2. CHLORPHENIRAMINE MALEATE [Concomitant]
  3. PARACETAMOL (PARACETAMOL) [Concomitant]
  4. BECONASE [Concomitant]
  5. CHLORPHENIRAMINE MALEATE [Concomitant]

REACTIONS (4)
  - FLUSHING [None]
  - INFUSION RELATED REACTION [None]
  - RETCHING [None]
  - URTICARIA [None]
